FAERS Safety Report 6145058-7 (Version None)
Quarter: 2009Q2

REPORT INFORMATION
  Report Type: 
  Country: None (occurrence: None)
  Receive Date: 20090406
  Receipt Date: 20090326
  Transmission Date: 20091009
  Serious: Yes (Other)
  Sender: FDA-Public Use
  Company Number: US-CELGENEUS-163-20785-09040034

PATIENT

DRUGS (1)
  1. THALIDOMIDE [Suspect]
     Indication: DRUG USE FOR UNKNOWN INDICATION
     Route: 048

REACTIONS (5)
  - AUTISM [None]
  - DUANE'S SYNDROME [None]
  - EYE MOVEMENT DISORDER [None]
  - LACRIMAL DISORDER [None]
  - VIITH NERVE PARALYSIS [None]
